FAERS Safety Report 10471843 (Version 4)
Quarter: 2015Q1

REPORT INFORMATION
  Report Type: Spontaneous
  Country: JP (occurrence: JP)
  Receive Date: 20140924
  Receipt Date: 20150317
  Transmission Date: 20150720
  Serious: Yes (Life-Threatening, Other)
  Sender: FDA-Public Use
  Company Number: JP-UCBSA-2014012090

PATIENT
  Age: 45 Year
  Sex: Female

DRUGS (16)
  1. RAVONAL [Suspect]
     Active Substance: THIOPENTAL
     Indication: EPILEPSY
     Dosage: 150-250 MG
     Route: 042
     Dates: start: 20120518, end: 20120602
  2. VANCOMYCIN HYDROCHLORIDE. [Suspect]
     Active Substance: VANCOMYCIN HYDROCHLORIDE
     Indication: PRODUCT USED FOR UNKNOWN INDICATION
     Dosage: DAILY DOSE 2 GRAM
     Route: 042
     Dates: start: 20120508, end: 20120510
  3. METHYLPREDNISOLONE. [Concomitant]
     Active Substance: METHYLPREDNISOLONE
     Dosage: 1 G, UNK
  4. NOBELBAR [Suspect]
     Active Substance: PHENOBARBITAL SODIUM
     Indication: EPILEPSY
     Dosage: 325-900 MG
     Route: 042
     Dates: start: 20120511, end: 20120516
  5. PREDNISOLONE. [Concomitant]
     Active Substance: PREDNISOLONE
     Dosage: 100-60-40-20
  6. KEPPRA [Suspect]
     Active Substance: LEVETIRACETAM
     Dosage: DAILY DOSE 500 MG
     Route: 048
     Dates: start: 20120530, end: 20120530
  7. ACYCLOVIR. [Suspect]
     Active Substance: ACYCLOVIR
     Indication: PRODUCT USED FOR UNKNOWN INDICATION
     Dosage: UNKNOWN DOSE
  8. KEPPRA [Suspect]
     Active Substance: LEVETIRACETAM
     Indication: EPILEPSY
     Dosage: DAILY DOSE 1500 MG
     Route: 048
     Dates: start: 20120515, end: 20120528
  9. DORMICUM [Suspect]
     Active Substance: MIDAZOLAM\MIDAZOLAM HYDROCHLORIDE
     Indication: EPILEPSY
     Dosage: 5-15 MG
     Route: 042
     Dates: start: 20120510, end: 20120518
  10. CEFTRIAXONE SODIUM. [Suspect]
     Active Substance: CEFTRIAXONE SODIUM
     Indication: PRODUCT USED FOR UNKNOWN INDICATION
     Dosage: UNKNOWN DOSE
  11. KEPPRA [Suspect]
     Active Substance: LEVETIRACETAM
     Dosage: DAILY DOSE 750 MG
     Route: 048
     Dates: start: 20120529, end: 20120529
  12. PHENYTOIN. [Suspect]
     Active Substance: PHENYTOIN
     Indication: EPILEPSY
     Dosage: UNKNOWN DOSE
  13. FOSPHENYTOIN SODIUM. [Suspect]
     Active Substance: FOSPHENYTOIN SODIUM
     Indication: EPILEPSY
     Dosage: 337.5-900 MG
     Route: 042
     Dates: start: 20120511, end: 20120528
  14. DEPAKENE [Suspect]
     Active Substance: VALPROIC ACID
     Indication: EPILEPSY
     Dosage: 600-1800 MG
     Route: 048
     Dates: start: 20120516, end: 20120528
  15. MINOMYCIN [Suspect]
     Active Substance: MINOCYCLINE HYDROCHLORIDE
     Indication: PRODUCT USED FOR UNKNOWN INDICATION
     Dosage: DAILY DOSE 200 MG
     Route: 042
     Dates: start: 20120508, end: 20120510
  16. DIPRIVAN [Suspect]
     Active Substance: PROPOFOL
     Indication: EPILEPSY
     Dosage: 40-120 MG
     Route: 042
     Dates: start: 20120510, end: 20120518

REACTIONS (3)
  - Drug eruption [Recovering/Resolving]
  - Histiocytosis haematophagic [Recovered/Resolved]
  - Multi-organ failure [Recovering/Resolving]

NARRATIVE: CASE EVENT DATE: 20120523
